FAERS Safety Report 8260903-7 (Version None)
Quarter: 2012Q2

REPORT INFORMATION
  Report Type: 
  Country: None (occurrence: None)
  Receive Date: 20120402
  Receipt Date: 20120326
  Transmission Date: 20120825
  Serious: No
  Sender: FDA-Public Use
  Company Number: 2012-00101

PATIENT
  Age: 32 Year
  Sex: Female

DRUGS (2)
  1. OXYMETAZOLINE HYDROCHLORIDE SPRAY [Suspect]
     Dosage: 2 DOSES IN EA NOSTRIL /1XDAY
     Route: 045
     Dates: start: 20120325, end: 20120326
  2. ANTIBIOTIC ( ZYRTEC) [Concomitant]

REACTIONS (3)
  - SINUSITIS [None]
  - AGEUSIA [None]
  - ANOSMIA [None]
